FAERS Safety Report 6362801-2 (Version None)
Quarter: 2009Q3

REPORT INFORMATION
  Report Type: 
  Country: None (occurrence: None)
  Receive Date: 20090919
  Receipt Date: 20090609
  Transmission Date: 20100115
  Serious: No
  Sender: FDA-Public Use
  Company Number: US-ABBOTT-09P-163-0579150-00

PATIENT
  Sex: Male
  Weight: 93.07 kg

DRUGS (3)
  1. HUMIRA [Suspect]
     Indication: PSORIATIC ARTHROPATHY
     Route: 058
     Dates: start: 20071201, end: 20080201
  2. HUMIRA [Suspect]
     Indication: PSORIASIS
  3. DIPROLENE [Concomitant]
     Indication: PSORIASIS
     Route: 061

REACTIONS (1)
  - PSORIATIC ARTHROPATHY [None]
